FAERS Safety Report 8169111-1 (Version None)
Quarter: 2012Q1

REPORT INFORMATION
  Report Type: 
  Country: None (occurrence: None)
  Receive Date: 20120227
  Receipt Date: 20120221
  Transmission Date: 20120608
  Serious: Yes (Other)
  Sender: FDA-Public Use
  Company Number: US-ABBOTT-12P-163-0906960-00

PATIENT
  Sex: Female
  Weight: 86.26 kg

DRUGS (3)
  1. NAPROXEN [Concomitant]
     Indication: PAIN
  2. HUMIRA [Suspect]
     Indication: RHEUMATOID ARTHRITIS
     Route: 058
     Dates: start: 20100101, end: 20111001
  3. HUMIRA [Suspect]
     Dates: start: 20120101

REACTIONS (1)
  - EXOSTOSIS [None]
